FAERS Safety Report 6767508-5 (Version None)
Quarter: 2010Q2

REPORT INFORMATION
  Report Type: 
  Country: None (occurrence: None)
  Receive Date: 20100610
  Receipt Date: 20100528
  Transmission Date: 20101027
  Serious: Yes (Other)
  Sender: FDA-Public Use
  Company Number: US-1182086

PATIENT
  Sex: Female

DRUGS (3)
  1. BETOPTIC S [Suspect]
     Dosage: (1 GTT BID OD OPHTHALMIC)
     Route: 047
     Dates: start: 20100527
  2. MAXZIDE [Concomitant]
  3. ACTONEL [Concomitant]

REACTIONS (1)
  - HYPOTENSION [None]
